FAERS Safety Report 7047763-7 (Version None)
Quarter: 2010Q4

REPORT INFORMATION
  Report Type: 
  Country: None (occurrence: None)
  Receive Date: 20101015
  Receipt Date: 20101007
  Transmission Date: 20110411
  Serious: Yes (Other)
  Sender: FDA-Public Use
  Company Number: DE-PFIZER INC-2010127467

PATIENT
  Age: 66 Year
  Sex: Male

DRUGS (6)
  1. SORTIS [Suspect]
     Indication: BLOOD CHOLESTEROL INCREASED
     Dosage: 10 MG, UNK
     Route: 048
     Dates: start: 19970101
  2. SORTIS [Interacting]
     Indication: MYOCARDIAL INFARCTION
  3. AMARYL [Interacting]
     Indication: TYPE 2 DIABETES MELLITUS
     Dosage: 1 MG, UNK
  4. NOVONORM [Concomitant]
     Indication: HYPOGLYCAEMIA
     Dosage: 1 MG, UNK
  5. APROVEL [Concomitant]
     Dosage: UNK
  6. HEPAR SL FORTE [Concomitant]
     Dosage: UNK

REACTIONS (7)
  - BLOOD CREATINE PHOSPHOKINASE INCREASED [None]
  - DRUG INTERACTION [None]
  - HYPOAESTHESIA [None]
  - MUSCLE SPASMS [None]
  - MUSCULOSKELETAL STIFFNESS [None]
  - TENDON PAIN [None]
  - TYPE 2 DIABETES MELLITUS [None]
